FAERS Safety Report 25655263 (Version 1)
Quarter: 2025Q3

REPORT INFORMATION
  Report Type: Spontaneous
  Country: US (occurrence: None)
  Receive Date: 20250806
  Receipt Date: 20250806
  Transmission Date: 20251021
  Serious: Yes (Hospitalization)
  Sender: FDA-CTU
  Company Number: None

PATIENT
  Age: 76 Year
  Sex: Male

DRUGS (2)
  1. RAYALDEE [Suspect]
     Active Substance: CALCIFEDIOL
     Indication: Chronic kidney disease
     Dates: start: 20211030
  2. RAYALDEE [Suspect]
     Active Substance: CALCIFEDIOL
     Indication: Hyperparathyroidism secondary

REACTIONS (2)
  - Ankle fracture [None]
  - Intentional dose omission [None]

NARRATIVE: CASE EVENT DATE: 20250721
